FAERS Safety Report 9161387 (Version 1)
Quarter: 2013Q1

REPORT INFORMATION
  Report Type: Report from Study
  Country: US (occurrence: US)
  Receive Date: 20130313
  Receipt Date: 20130313
  Transmission Date: 20140127
  Serious: No
  Sender: FDA-Public Use
  Company Number: US-009507513-2012SP015832

PATIENT
  Age: 44 Year
  Sex: Female

DRUGS (10)
  1. VICTRELIS [Suspect]
     Dosage: 4 DF, TID (WITH FOOD)
     Route: 048
  2. PEGINTERFERON ALFA-2A [Suspect]
     Dosage: UNK
  3. RIBAVIRIN [Suspect]
     Dosage: UNK
  4. MOTRIN [Concomitant]
     Dosage: UNK
  5. ZOFRAN [Concomitant]
     Dosage: UNK
     Route: 065
  6. VICODIN [Concomitant]
     Dosage: UNK
  7. FLEXERIL [Concomitant]
     Dosage: UNK
  8. TRAMADOL HYDROCHLORIDE [Concomitant]
     Dosage: UNK
  9. COLLAGEN [Concomitant]
     Dosage: UNK
  10. CHONDROITIN SULFATE SODIUM (+) GLUCOSAMINE SULFATE [Concomitant]

REACTIONS (4)
  - Rash [Unknown]
  - Urticaria [Unknown]
  - Abdominal discomfort [Unknown]
  - Drug dose omission [Unknown]
